FAERS Safety Report 10165467 (Version 1)
Quarter: 2014Q2

REPORT INFORMATION
  Report Type: Spontaneous
  Country: US (occurrence: US)
  Receive Date: 20140510
  Receipt Date: 20140510
  Transmission Date: 20141212
  Serious: No
  Sender: FDA-Public Use
  Company Number: US-BRISTOL-MYERS SQUIBB COMPANY-20490173

PATIENT
  Age: 60 Year
  Sex: Female
  Weight: 113.38 kg

DRUGS (10)
  1. BYDUREON [Suspect]
     Indication: TYPE 2 DIABETES MELLITUS
     Route: 058
     Dates: start: 20140207, end: 20140221
  2. LANTUS [Concomitant]
  3. NOVOLOG [Concomitant]
  4. METFORMIN [Concomitant]
  5. LISINOPRIL [Concomitant]
  6. ESTRADIOL [Concomitant]
  7. SERTRALINE [Concomitant]
  8. SIMVASTATIN [Concomitant]
  9. OXCARBAZEPINE [Concomitant]
  10. GABAPENTIN [Concomitant]

REACTIONS (6)
  - Injection site erythema [Recovered/Resolved]
  - Injection site swelling [Unknown]
  - Injection site pruritus [Recovered/Resolved]
  - Injection site scar [Unknown]
  - Fatigue [Recovered/Resolved]
  - Nausea [Recovered/Resolved]
